FAERS Safety Report 9426010 (Version 1)
Quarter: 2013Q3

REPORT INFORMATION
  Report Type: Spontaneous
  Country: BR (occurrence: BR)
  Receive Date: 20130730
  Receipt Date: 20130730
  Transmission Date: 20140515
  Serious: Yes (Death, Other)
  Sender: FDA-Public Use
  Company Number: BR-AMGEN-BRASP2013052571

PATIENT
  Age: 56 Year
  Sex: Female
  Weight: 75 kg

DRUGS (1)
  1. ENBREL [Suspect]
     Indication: RHEUMATOID ARTHRITIS
     Dosage: 1 APPLICATION OF 50 MG, WEEKLY
     Route: 058
     Dates: start: 201207, end: 201302

REACTIONS (3)
  - Systemic sclerosis [Fatal]
  - Condition aggravated [Unknown]
  - Bronchopneumonia [Unknown]
